FAERS Safety Report 9679134 (Version 1)
Quarter: 2013Q4

REPORT INFORMATION
  Report Type: Spontaneous
  Country: US (occurrence: US)
  Receive Date: 20131108
  Receipt Date: 20131108
  Transmission Date: 20140711
  Serious: Yes (Other)
  Sender: FDA-Public Use
  Company Number: CHPA2013US016767

PATIENT
  Age: 21 Year
  Sex: Female

DRUGS (1)
  1. KERI ORIGINAL [Suspect]
     Dosage: UNK, PRN
     Route: 061
     Dates: start: 201307, end: 201309

REACTIONS (3)
  - Eczema [Not Recovered/Not Resolved]
  - Rash papular [Not Recovered/Not Resolved]
  - Urticaria [Not Recovered/Not Resolved]
